FAERS Safety Report 14985314 (Version 1)
Quarter: 2018Q2

REPORT INFORMATION
  Report Type: Spontaneous
  Country: FR (occurrence: FR)
  Receive Date: 20180607
  Receipt Date: 20180607
  Transmission Date: 20180711
  Serious: Yes (Hospitalization)
  Sender: FDA-Public Use
  Company Number: FR-ASTRAZENECA-2018SE72457

PATIENT
  Age: 80 Year
  Sex: Male
  Weight: 67 kg

DRUGS (19)
  1. ZYMAD [Concomitant]
     Active Substance: CHOLECALCIFEROL
  2. SERETIDE [Concomitant]
     Active Substance: FLUTICASONE PROPIONATE\SALMETEROL XINAFOATE
  3. INSPRA [Concomitant]
     Active Substance: EPLERENONE
  4. GLIBENCLAMIDE [Concomitant]
     Active Substance: GLYBURIDE
  5. LANTUS [Concomitant]
     Active Substance: INSULIN GLARGINE
  6. BRILIQUE [Suspect]
     Active Substance: TICAGRELOR
     Indication: CORONARY ARTERY DISEASE
     Route: 048
     Dates: end: 20180517
  7. PERMIXON [Suspect]
     Active Substance: HERBALS\SAW PALMETTO
     Indication: DYSURIA
     Dosage: 1.0DF UNKNOWN
     Route: 048
  8. TRINIPATCH [Concomitant]
     Active Substance: NITROGLYCERIN
  9. KARDEGIC [Concomitant]
     Active Substance: ASPIRIN DL-LYSINE
  10. LIPTRUZET [Suspect]
     Active Substance: ATORVASTATIN CALCIUM\EZETIMIBE
     Indication: CORONARY ARTERY DISEASE
     Route: 048
     Dates: end: 20180417
  11. CORDARONE [Suspect]
     Active Substance: AMIODARONE HYDROCHLORIDE
     Indication: VENTRICULAR ARRHYTHMIA
     Route: 048
     Dates: start: 20170501, end: 20180319
  12. ZANIDIP [Suspect]
     Active Substance: LERCANIDIPINE HYDROCHLORIDE
     Indication: HYPERTENSION
     Route: 048
     Dates: end: 20180417
  13. METFORMIN [Suspect]
     Active Substance: METFORMIN HYDROCHLORIDE
     Indication: TYPE 2 DIABETES MELLITUS
     Dosage: 1000 MG (NON AZ)
     Route: 048
  14. BISOPROLOL [Concomitant]
     Active Substance: BISOPROLOL
  15. FUROSEMIDE. [Concomitant]
     Active Substance: FUROSEMIDE
  16. HYPERIUM [Concomitant]
     Active Substance: RILMENIDINE PHOSPHATE
  17. PLAVIX [Concomitant]
     Active Substance: CLOPIDOGREL BISULFATE
  18. NATISPRAY [Concomitant]
     Active Substance: NITROGLYCERIN
  19. COZAAR [Suspect]
     Active Substance: LOSARTAN POTASSIUM
     Indication: HYPERTENSION
     Route: 048

REACTIONS (1)
  - Interstitial lung disease [Recovering/Resolving]

NARRATIVE: CASE EVENT DATE: 20180223
